FAERS Safety Report 5530405-7 (Version None)
Quarter: 2007Q4

REPORT INFORMATION
  Report Type: 
  Country: None (occurrence: None)
  Receive Date: 20071127
  Receipt Date: 20071112
  Transmission Date: 20080405
  Serious: Yes (Hospitalization)
  Sender: FDA-Public Use
  Company Number: 106843

PATIENT
  Age: 50 Year
  Sex: Female

DRUGS (2)
  1. DAIVOBET (DAIVOBET /01643401/) [Suspect]
     Indication: PSORIASIS
     Dosage: (INFREQUENT USE. 1-2 TIMES A WEEK.) CUTANEOUS
     Route: 058
     Dates: start: 20051220, end: 20071009
  2. DUACT (DUACT) [Concomitant]

REACTIONS (4)
  - CATARACT [None]
  - OFF LABEL USE [None]
  - VISION BLURRED [None]
  - VISUAL ACUITY REDUCED [None]
